FAERS Safety Report 6213251-0 (Version None)
Quarter: 2009Q2

REPORT INFORMATION
  Report Type: 
  Country: None (occurrence: None)
  Receive Date: 20090602
  Receipt Date: 20090602
  Transmission Date: 20091009
  Serious: Yes (Other)
  Sender: FDA-Public Use
  Company Number: None

PATIENT
  Age: 2 Year
  Sex: Male
  Weight: 90.7194 kg

DRUGS (2)
  1. RISPERDAL [Suspect]
     Indication: SCHIZOPHRENIA
     Dosage: 1 MG 3 TIMES A DAY PO
     Route: 048
     Dates: start: 20071118, end: 20090528
  2. RISPERDAL [Concomitant]

REACTIONS (1)
  - PITUITARY TUMOUR BENIGN [None]
